FAERS Safety Report 6805222-8 (Version None)
Quarter: 2010Q2

REPORT INFORMATION
  Report Type: 
  Country: None (occurrence: None)
  Receive Date: 20100628
  Receipt Date: 20080204
  Transmission Date: 20101027
  Serious: Yes (Other)
  Sender: FDA-Public Use
  Company Number: US-PFIZER INC-2007084443

PATIENT
  Sex: Female

DRUGS (5)
  1. NIFEDIPINE [Suspect]
  2. ENBREL [Suspect]
     Indication: RHEUMATOID ARTHRITIS
     Dosage: 2 EVERY 1 WEEKS
     Route: 058
     Dates: start: 20061103
  3. LEFLUNOMIDE [Concomitant]
     Dates: start: 20030101
  4. LEVOTHYROXINE SODIUM [Concomitant]
  5. VICODIN [Concomitant]
     Dates: start: 20060101

REACTIONS (1)
  - ARRHYTHMIA [None]
